FAERS Safety Report 4433911-1 (Version None)
Quarter: 2004Q3

REPORT INFORMATION
  Report Type: 
  Country: None (occurrence: None)
  Receive Date: 20040825
  Receipt Date: 20040617
  Transmission Date: 20050211
  Serious: Yes (Hospitalization)
  Sender: FDA-Public Use
  Company Number: 2004041535

PATIENT
  Sex: Male
  Weight: 86.1834 kg

DRUGS (1)
  1. NARDIL [Suspect]
     Indication: DEPRESSION
     Dosage: UNK
     Route: 065

REACTIONS (2)
  - DEPRESSION [None]
  - PANIC ATTACK [None]
